FAERS Safety Report 6974487-4 (Version None)
Quarter: 2010Q3

REPORT INFORMATION
  Report Type: 
  Country: None (occurrence: None)
  Receive Date: 20100909
  Receipt Date: 20090520
  Transmission Date: 20110219
  Serious: No
  Sender: FDA-Public Use
  Company Number: US-WYE-H04930408

PATIENT
  Age: 68 Year
  Sex: Female
  Weight: 111.23 kg

DRUGS (10)
  1. PRISTIQ [Suspect]
     Indication: DEPRESSION
     Route: 048
     Dates: start: 20080627
  2. CLONAZEPAM [Concomitant]
  3. CARBAMAZEPINE [Concomitant]
  4. VYTORIN [Concomitant]
  5. KLOR-CON [Concomitant]
  6. FUROSEMIDE [Concomitant]
  7. NADOLOL [Concomitant]
  8. DIOVAN [Concomitant]
  9. SEROQUEL [Concomitant]
  10. CLONIDINE [Concomitant]

REACTIONS (4)
  - AMNESIA [None]
  - EMOTIONAL DISTRESS [None]
  - SLEEP DISORDER [None]
  - STRESS [None]
